FAERS Safety Report 6922481-1 (Version None)
Quarter: 2010Q3

REPORT INFORMATION
  Report Type: 
  Country: None (occurrence: None)
  Receive Date: 20100813
  Receipt Date: 20100805
  Transmission Date: 20110219
  Serious: Yes (Other)
  Sender: FDA-Public Use
  Company Number: CA-BAYER-201029685NA

PATIENT
  Age: 51 Year
  Sex: Female
  Weight: 70 kg

DRUGS (2)
  1. MAGNEVIST [Suspect]
     Indication: BRAIN NEOPLASM
     Dosage: TOTAL DAILY DOSE: 14 ML
     Route: 042
     Dates: start: 20100722, end: 20100722
  2. MAGNEVIST [Suspect]
     Dates: start: 20100401, end: 20100401

REACTIONS (5)
  - BURNING SENSATION [None]
  - CONTRAST MEDIA REACTION [None]
  - ERYTHEMA [None]
  - EYE DISORDER [None]
  - OCULAR HYPERAEMIA [None]
